FAERS Safety Report 13557515 (Version 2)
Quarter: 2017Q3

REPORT INFORMATION
  Report Type: Spontaneous
  Country: US (occurrence: US)
  Receive Date: 20170518
  Receipt Date: 20170707
  Transmission Date: 20171127
  Serious: No
  Sender: FDA-Public Use
  Company Number: US-TEVA-769002ACC

PATIENT
  Sex: Female

DRUGS (10)
  1. VITAMIN D3 [Concomitant]
     Active Substance: CHOLECALCIFEROL
  2. ESCITALOPRAM [Concomitant]
     Active Substance: ESCITALOPRAM OXALATE
  3. CABERGOLINE. [Concomitant]
     Active Substance: CABERGOLINE
  4. KETOPROFEN. [Concomitant]
     Active Substance: KETOPROFEN
  5. LACTAID [Concomitant]
     Active Substance: LACTASE
  6. ASPIRIN. [Concomitant]
     Active Substance: ASPIRIN
  7. ATOVAQUONE. [Concomitant]
     Active Substance: ATOVAQUONE
  8. POTASSIUM [Concomitant]
     Active Substance: POTASSIUM
  9. COPAXONE [Suspect]
     Active Substance: GLATIRAMER ACETATE
     Indication: MULTIPLE SCLEROSIS
     Route: 058
     Dates: start: 20160323
  10. ALLEGRA-D [Concomitant]
     Active Substance: FEXOFENADINE\PSEUDOEPHEDRINE

REACTIONS (1)
  - Injection site swelling [Not Recovered/Not Resolved]
